FAERS Safety Report 9308407 (Version 1)
Quarter: 2013Q2

REPORT INFORMATION
  Report Type: Spontaneous
  Country: SE (occurrence: SE)
  Receive Date: 20130524
  Receipt Date: 20130524
  Transmission Date: 20140414
  Serious: Yes (Death, Hospitalization, Other)
  Sender: FDA-Public Use
  Company Number: PHHY2013SE051023

PATIENT
  Age: 45 Year
  Sex: Female

DRUGS (1)
  1. PARACETAMOL [Suspect]
     Dosage: 190 G, UNK

REACTIONS (10)
  - Death [Fatal]
  - Multi-organ failure [Unknown]
  - Hypothermia [Unknown]
  - Methaemoglobinaemia [Unknown]
  - Circulatory collapse [Unknown]
  - Coma [Unknown]
  - Hypotension [Unknown]
  - Metabolic acidosis [Unknown]
  - Toxicity to various agents [Unknown]
  - Overdose [Unknown]
